FAERS Safety Report 18156081 (Version 2)
Quarter: 2020Q3

REPORT INFORMATION
  Report Type: Other
  Country: CA (occurrence: CA)
  Receive Date: 20200817
  Receipt Date: 20200824
  Transmission Date: 20201103
  Serious: Yes (Death, Life-Threatening, Hospitalization, Disabling, Other)
  Sender: FDA-Public Use
  Company Number: CA-CELLTRION INC.-2020CA025229

PATIENT

DRUGS (96)
  1. AMIODARONE HYDROCHLORIDE. [Suspect]
     Active Substance: AMIODARONE HYDROCHLORIDE
     Indication: PRODUCT USED FOR UNKNOWN INDICATION
     Dosage: UNK
     Route: 065
  2. AZITHROMYCIN ANHYDROUS. [Suspect]
     Active Substance: AZITHROMYCIN ANHYDROUS
     Indication: PRODUCT USED FOR UNKNOWN INDICATION
     Dosage: 500 MG, 1 EVERY 1 DAYS
     Route: 042
  3. CEFTRIAXONE SODIUM. [Suspect]
     Active Substance: CEFTRIAXONE SODIUM
     Dosage: 1 G, 1 EVERY 1 DAY
     Route: 042
  4. CYCLOPHOSPHAMIDE. [Suspect]
     Active Substance: CYCLOPHOSPHAMIDE
     Dosage: 1060 MILLIGRAM, CYCLICAL
     Route: 042
  5. CYCLOPHOSPHAMIDE. [Suspect]
     Active Substance: CYCLOPHOSPHAMIDE
     Dosage: 1060 MILLIGRAM, 1 EVERY 1 DAY
     Route: 042
  6. DIGOXIN. [Suspect]
     Active Substance: DIGOXIN
     Dosage: 0.25 MG, 1 EVERY 4 HOURS
     Route: 042
  7. HYDRALAZINE [Suspect]
     Active Substance: HYDRALAZINE HYDROCHLORIDE
     Indication: PRODUCT USED FOR UNKNOWN INDICATION
     Dosage: 10 MG, 1 EVERY 6 HOURS
     Route: 042
  8. METHYLPREDNISOLONE SODIUM SUCCINATE. [Suspect]
     Active Substance: METHYLPREDNISOLONE SODIUM SUCCINATE
     Dosage: 125 MG, 4 EVERY 1 DAYS
     Route: 042
  9. METHYLPREDNISOLONE SODIUM SUCCINATE. [Suspect]
     Active Substance: METHYLPREDNISOLONE SODIUM SUCCINATE
     Indication: PRODUCT USED FOR UNKNOWN INDICATION
     Dosage: 125 MILLIGRAM, 1 EVERY 6 HOURS
     Route: 042
  10. METOPROLOL. [Suspect]
     Active Substance: METOPROLOL
     Indication: PRODUCT USED FOR UNKNOWN INDICATION
     Dosage: 5 MG, 1 EVERY 6 HOURS
     Route: 042
  11. MORPHINE SULFATE. [Suspect]
     Active Substance: MORPHINE SULFATE
     Indication: PRODUCT USED FOR UNKNOWN INDICATION
     Dosage: AS REQUIRED
     Route: 042
  12. PACLITAXEL. [Suspect]
     Active Substance: PACLITAXEL
     Indication: BREAST CANCER
     Dosage: 297 MILLIGRAM, 1 EVERY 2 WEEKS
     Route: 042
  13. DEXAMETHASONE. [Concomitant]
     Active Substance: DEXAMETHASONE
     Dosage: UNK
     Route: 048
  14. AMIODARONE [Suspect]
     Active Substance: AMIODARONE
     Indication: PRODUCT USED FOR UNKNOWN INDICATION
     Route: 065
  15. AZITHROMYCIN ANHYDROUS. [Suspect]
     Active Substance: AZITHROMYCIN ANHYDROUS
     Dosage: 500 MG, 1 EVERY 1 DAY
     Route: 042
  16. CYCLOPHOSPHAMIDE. [Suspect]
     Active Substance: CYCLOPHOSPHAMIDE
     Dosage: 1060 MILLIGRAM, CYCLICAL
     Route: 042
  17. CYCLOPHOSPHAMIDE. [Suspect]
     Active Substance: CYCLOPHOSPHAMIDE
     Dosage: 1060 MILLIGRAM, 1 EVERY 2 WEEKS
     Route: 042
  18. DILTIAZEM HYDROCHLORIDE. [Suspect]
     Active Substance: DILTIAZEM HYDROCHLORIDE
     Dosage: 180 MG
     Route: 048
  19. DIMENHYDRINATE. [Suspect]
     Active Substance: DIMENHYDRINATE
     Dosage: 50 MG, 6 EVERY 1 DAYS
     Route: 042
  20. DOXORUBICIN [Suspect]
     Active Substance: DOXORUBICIN
     Indication: BREAST CANCER
     Dosage: 106 MG
     Route: 042
  21. ENOXAPARIN SODIUM. [Suspect]
     Active Substance: ENOXAPARIN SODIUM
     Indication: PRODUCT USED FOR UNKNOWN INDICATION
     Dosage: 50 MG, 1 EVERY 4 HOURS
     Route: 058
  22. ENOXAPARIN SODIUM. [Suspect]
     Active Substance: ENOXAPARIN SODIUM
     Dosage: 40 MG, 1 EVERY 1 DAYS
     Route: 058
  23. ENOXAPARIN [Suspect]
     Active Substance: ENOXAPARIN
     Indication: PRODUCT USED FOR UNKNOWN INDICATION
     Dosage: 40 MILLIGRAM, 1 EVERY 1 DAYS
     Route: 058
  24. METHYLPREDNISOLONE SODIUM SUCCINATE. [Suspect]
     Active Substance: METHYLPREDNISOLONE SODIUM SUCCINATE
     Indication: PRODUCT USED FOR UNKNOWN INDICATION
     Dosage: 125 MG, 4 EVERY 1 DAYS
     Route: 042
  25. METOPROLOL. [Suspect]
     Active Substance: METOPROLOL
     Dosage: 2.5 MG, 4 EVERY 1 DAYS
     Route: 042
  26. PACLITAXEL. [Suspect]
     Active Substance: PACLITAXEL
     Indication: BREAST CANCER
     Dosage: 297 MG, 1 EVERY 14 DAYS
     Route: 042
  27. PANTOPRAZOLE [Suspect]
     Active Substance: PANTOPRAZOLE
     Indication: PRODUCT USED FOR UNKNOWN INDICATION
     Dosage: 8 MG
     Route: 042
  28. PROCYTOX [Suspect]
     Active Substance: CYCLOPHOSPHAMIDE
     Indication: BREAST CANCER
     Dosage: 1060 MG, CYCLICAL
     Route: 042
  29. GABAPENTIN. [Concomitant]
     Active Substance: GABAPENTIN
     Indication: PRODUCT USED FOR UNKNOWN INDICATION
     Dosage: UNK
  30. GABAPENTIN. [Concomitant]
     Active Substance: GABAPENTIN
     Dosage: 100 MG, 3 EVERY 1 DAYS
     Route: 048
  31. ONDANSETRON [Concomitant]
     Active Substance: ONDANSETRON
     Dosage: UNK
     Route: 048
  32. AMIODARONE HYDROCHLORIDE. [Suspect]
     Active Substance: AMIODARONE HYDROCHLORIDE
     Dosage: UNK
     Route: 065
  33. CYCLOPHOSPHAMIDE. [Suspect]
     Active Substance: CYCLOPHOSPHAMIDE
     Indication: BREAST CANCER
     Dosage: 1060 MILLIGRAM, 1 EVERY 2 WEEKS
     Route: 042
  34. CYCLOPHOSPHAMIDE. [Suspect]
     Active Substance: CYCLOPHOSPHAMIDE
     Dosage: 1060 MILLIGRAM, CYCLICAL
     Route: 042
  35. CYCLOPHOSPHAMIDE. [Suspect]
     Active Substance: CYCLOPHOSPHAMIDE
     Dosage: 125 MILLIGRAM
     Route: 042
  36. DIGOXIN. [Suspect]
     Active Substance: DIGOXIN
     Dosage: 0.25 MG
     Route: 042
  37. DIGOXIN. [Suspect]
     Active Substance: DIGOXIN
     Indication: PRODUCT USED FOR UNKNOWN INDICATION
     Dosage: 0.25 MILLIGRAM
     Route: 042
  38. DILTIAZEM CD [Suspect]
     Active Substance: DILTIAZEM
     Dosage: 180 MILLIGRAM
     Route: 048
  39. DIMENHYDRINATE. [Suspect]
     Active Substance: DIMENHYDRINATE
     Indication: PRODUCT USED FOR UNKNOWN INDICATION
     Dosage: 50 MG, 1 EVERY 4 HOURS
     Route: 042
  40. DOXORUBICIN HCL [Suspect]
     Active Substance: DOXORUBICIN HYDROCHLORIDE
     Indication: BREAST CANCER
     Dosage: 106 MG, CYCLIC
     Route: 042
  41. DOXORUBICIN [Suspect]
     Active Substance: DOXORUBICIN
     Dosage: 106 MG, 1 EVERY 2 WEEKS
     Route: 042
  42. FUROSEMIDE. [Suspect]
     Active Substance: FUROSEMIDE
     Indication: BREAST CANCER
     Dosage: 40 MG, 1 EVERY 1 DAYS
     Route: 048
  43. MORPHINE SULFATE. [Suspect]
     Active Substance: MORPHINE SULFATE
     Dosage: UNK
     Route: 042
  44. FILGRASTIM [Concomitant]
     Active Substance: FILGRASTIM
     Dosage: 300 MICROGRAM, 1 EVERY 1 DAY
     Route: 058
  45. DIGOXIN. [Suspect]
     Active Substance: DIGOXIN
     Indication: PRODUCT USED FOR UNKNOWN INDICATION
     Dosage: 10 MILLIGRAM, 1 EVERY 1 HOUR
     Route: 042
  46. DIGOXIN. [Suspect]
     Active Substance: DIGOXIN
     Dosage: 10 MILLIGRAM, 1 EVERY 1 HOUR
     Route: 042
  47. DIMENHYDRINATE. [Suspect]
     Active Substance: DIMENHYDRINATE
     Dosage: 50 MG, 1 EVERY 4 HOURS
     Route: 042
  48. ENOXAPARIN SODIUM. [Suspect]
     Active Substance: ENOXAPARIN SODIUM
     Dosage: 40 MG, 1 EVERY 1 DAYS
     Route: 058
  49. HYDROMORPHONE HYDROCHLORIDE. [Suspect]
     Active Substance: HYDROMORPHONE HYDROCHLORIDE
     Dosage: UNK
     Route: 042
  50. METHYLPREDNISOLONE. [Suspect]
     Active Substance: METHYLPREDNISOLONE
     Indication: PRODUCT USED FOR UNKNOWN INDICATION
     Dosage: 125 MG, 1 EVERY 6 HOURS
     Route: 042
  51. METOPROLOL. [Suspect]
     Active Substance: METOPROLOL
     Dosage: 2.5 MG, 1 EVERY 6 HOURS
     Route: 042
  52. METOPROLOL. [Suspect]
     Active Substance: METOPROLOL
     Dosage: 5 MG, 4 EVERY 1 DAYS
     Route: 042
  53. MORPHINE [Suspect]
     Active Substance: MORPHINE
     Indication: PRODUCT USED FOR UNKNOWN INDICATION
     Dosage: 1 EVERY 10 MINS
     Route: 042
  54. DEXAMETHASONE. [Concomitant]
     Active Substance: DEXAMETHASONE
     Indication: SUPPORTIVE CARE
     Dosage: 20 MG, 1 EVERY 1 DAY
     Route: 048
  55. METOCLOPRAMIDE. [Concomitant]
     Active Substance: METOCLOPRAMIDE
     Dosage: 10 MG, 4 EVERY 1 DAYS
     Route: 048
  56. AZITHROMYCIN ANHYDROUS. [Suspect]
     Active Substance: AZITHROMYCIN ANHYDROUS
     Dosage: 500 MG, 1 EVERY 1 DAYS
     Route: 042
  57. CEFTRIAXONE SODIUM. [Suspect]
     Active Substance: CEFTRIAXONE SODIUM
     Indication: PRODUCT USED FOR UNKNOWN INDICATION
     Dosage: 1 G, 1 EVERY 1 DAY
     Route: 042
  58. DIGOXIN. [Suspect]
     Active Substance: DIGOXIN
     Dosage: 0.25 MILLIGRAM, 1 EVERY 4 HOURS
     Route: 042
  59. HYDRALAZINE [Suspect]
     Active Substance: HYDRALAZINE HYDROCHLORIDE
     Dosage: 10 MG, 6 EVERY 1 DAYS
     Route: 042
  60. HYDRALAZINE [Suspect]
     Active Substance: HYDRALAZINE HYDROCHLORIDE
     Dosage: 10 MG, 1 EVERY 4 HOURS
     Route: 042
  61. HYDROMORPHONE [Suspect]
     Active Substance: HYDROMORPHONE
     Indication: PRODUCT USED FOR UNKNOWN INDICATION
     Route: 042
  62. METHYLPREDNISOLONE SODIUM SUCCINATE. [Suspect]
     Active Substance: METHYLPREDNISOLONE SODIUM SUCCINATE
     Dosage: 125 MILLIGRAM, 1 EVERY 6 HOURS
     Route: 042
  63. PACLITAXEL. [Suspect]
     Active Substance: PACLITAXEL
     Indication: BREAST CANCER
     Dosage: 297 MG, CYCLICAL
     Route: 042
  64. METOCLOPRAMIDE. [Concomitant]
     Active Substance: METOCLOPRAMIDE
     Dosage: 10 MG, 1 EVERY 6 HOURS
     Route: 048
  65. TRASTUZUMAB (UNKNOWN) [Suspect]
     Active Substance: TRASTUZUMAB
     Indication: BREAST CANCER
     Route: 065
  66. DIGOXIN. [Suspect]
     Active Substance: DIGOXIN
     Dosage: 10 MG
     Route: 042
  67. DILTIAZEM CD [Suspect]
     Active Substance: DILTIAZEM
     Indication: PRODUCT USED FOR UNKNOWN INDICATION
     Dosage: 180 MILLIGRAM
     Route: 048
  68. DOXORUBICIN [Suspect]
     Active Substance: DOXORUBICIN
     Indication: BREAST CANCER
     Dosage: 106 MILLIGRAM, 1 EVERY 14 DAYS
     Route: 042
  69. FUROSEMIDE. [Suspect]
     Active Substance: FUROSEMIDE
     Indication: PRODUCT USED FOR UNKNOWN INDICATION
  70. HYDRALAZINE [Suspect]
     Active Substance: HYDRALAZINE HYDROCHLORIDE
     Dosage: 10 MG, 4 EVERY 1 DAYS
     Route: 042
  71. PACLITAXEL. [Suspect]
     Active Substance: PACLITAXEL
     Dosage: 297 MILLIGRAM
     Route: 042
  72. PANTOPRAZOLE [Suspect]
     Active Substance: PANTOPRAZOLE
     Dosage: 8 MG
     Route: 042
  73. PANTOPRAZOLE [Suspect]
     Active Substance: PANTOPRAZOLE
     Dosage: 8 MG
     Route: 042
  74. METOCLOPRAMIDE. [Concomitant]
     Active Substance: METOCLOPRAMIDE
     Indication: PRODUCT USED FOR UNKNOWN INDICATION
     Dosage: 10 MG
  75. ONDANSETRON [Concomitant]
     Active Substance: ONDANSETRON
     Indication: SUPPORTIVE CARE
     Dosage: 8 G, 1 EVERY 12 HOURS
     Route: 048
  76. ONDANSETRON [Concomitant]
     Active Substance: ONDANSETRON
     Dosage: 8 G, 2 EVERY 1 DAYS
     Route: 048
  77. ADRIAMYCIN [Suspect]
     Active Substance: DOXORUBICIN HYDROCHLORIDE
     Indication: BREAST CANCER
     Dosage: 106.0 MG
     Route: 042
  78. CEFTRIAXONE SODIUM. [Suspect]
     Active Substance: CEFTRIAXONE SODIUM
     Dosage: 1 G, 6 EVERY 1 DAYS
     Route: 042
  79. CYCLOPHOSPHAMIDE. [Suspect]
     Active Substance: CYCLOPHOSPHAMIDE
     Dosage: 1060 MILLIGRAM, 1 EVERY 2 WEEKS
     Route: 042
  80. DIGOXIN. [Suspect]
     Active Substance: DIGOXIN
     Dosage: 10 MILLIGRAM
     Route: 042
  81. DILTIAZEM CD [Suspect]
     Active Substance: DILTIAZEM
     Indication: PRODUCT USED FOR UNKNOWN INDICATION
     Dosage: 180 MILLIGRAM
     Route: 048
  82. DIMENHYDRINATE. [Suspect]
     Active Substance: DIMENHYDRINATE
     Indication: PRODUCT USED FOR UNKNOWN INDICATION
     Dosage: 1 DOSAGE FORMS, 1 EVERY 6 HOURS
     Route: 042
  83. FUROSEMIDE. [Suspect]
     Active Substance: FUROSEMIDE
     Indication: BREAST CANCER
     Dosage: 40 MG, 1 EVERY 1 DAYS
     Route: 048
  84. HYDROMORPHONE HYDROCHLORIDE. [Suspect]
     Active Substance: HYDROMORPHONE HYDROCHLORIDE
     Indication: PRODUCT USED FOR UNKNOWN INDICATION
     Dosage: UNK
     Route: 042
  85. AZITHROMYCIN ANHYDROUS. [Suspect]
     Active Substance: AZITHROMYCIN ANHYDROUS
     Indication: PRODUCT USED FOR UNKNOWN INDICATION
     Dosage: 500 MG, 1 EVERY 1 DAY
     Route: 042
  86. DIGOXIN. [Suspect]
     Active Substance: DIGOXIN
     Indication: PRODUCT USED FOR UNKNOWN INDICATION
     Dosage: 10 MG
     Route: 042
  87. DIGOXIN. [Suspect]
     Active Substance: DIGOXIN
     Dosage: 0.25 MG, 6 EVERY 1 DAYS
     Route: 042
  88. DILTIAZEM HYDROCHLORIDE. [Suspect]
     Active Substance: DILTIAZEM HYDROCHLORIDE
     Indication: PRODUCT USED FOR UNKNOWN INDICATION
     Dosage: 180 MG
     Route: 048
  89. ENOXAPARIN [Suspect]
     Active Substance: ENOXAPARIN
     Dosage: 40 MILLIGRAM, 1 EVERY 1 DAYS
     Route: 058
  90. HYDROMORPHONE HYDROCHLORIDE. [Suspect]
     Active Substance: HYDROMORPHONE HYDROCHLORIDE
     Dosage: AS REQUIRED
     Route: 042
  91. PANTOPRAZOLE [Suspect]
     Active Substance: PANTOPRAZOLE
     Indication: PRODUCT USED FOR UNKNOWN INDICATION
     Dosage: 8 MG, 1 EVERY 1 HOURS
     Route: 042
  92. PROCYTOX [Suspect]
     Active Substance: CYCLOPHOSPHAMIDE
     Indication: BREAST CANCER
     Dosage: 1060 MG, 1 EVERY 14 DAYS
     Route: 042
  93. ACETAMINOPHEN;CAFFEINE;DIHYDROCODEINE [Concomitant]
     Active Substance: ACETAMINOPHEN\CAFFEINE\DIHYDROCODEINE BITARTRATE
     Dosage: UNK
     Route: 065
  94. APREPITANT. [Concomitant]
     Active Substance: APREPITANT
     Indication: SUPPORTIVE CARE
     Dosage: 125.0 MG
     Route: 048
  95. DEXAMETHASONE. [Concomitant]
     Active Substance: DEXAMETHASONE
     Dosage: 20 MILLIGRAM, 1 EVERY 1 DAYS
     Route: 048
  96. FILGRASTIM [Concomitant]
     Active Substance: FILGRASTIM
     Indication: SUPPORTIVE CARE
     Dosage: UNK
     Route: 058

REACTIONS (3)
  - Hypoxia [Fatal]
  - Alveolitis [Fatal]
  - Atrial fibrillation [Fatal]
